FAERS Safety Report 6565702-X (Version None)
Quarter: 2010Q1

REPORT INFORMATION
  Report Type: 
  Country: None (occurrence: None)
  Receive Date: 20100201
  Receipt Date: 20100122
  Transmission Date: 20100710
  Serious: Yes (Hospitalization)
  Sender: FDA-Public Use
  Company Number: CA-ABBOTT-10P-028-0621409-00

PATIENT
  Sex: Female

DRUGS (1)
  1. HUMIRA [Suspect]
     Indication: CROHN'S DISEASE
     Route: 058
     Dates: start: 20090618

REACTIONS (10)
  - ASTHENIA [None]
  - DERMATITIS CONTACT [None]
  - DRY SKIN [None]
  - ELECTROLYTE IMBALANCE [None]
  - ERYTHEMA [None]
  - FATIGUE [None]
  - RASH PAPULAR [None]
  - RED BLOOD CELL COUNT DECREASED [None]
  - SKIN BURNING SENSATION [None]
  - SWELLING [None]
